FAERS Safety Report 5715915-1 (Version None)
Quarter: 2008Q2

REPORT INFORMATION
  Report Type: 
  Country: None (occurrence: None)
  Receive Date: 20080424
  Receipt Date: 20080414
  Transmission Date: 20081010
  Serious: Yes (Other)
  Sender: FDA-Public Use
  Company Number: GB-ROCHE-558624

PATIENT
  Sex: Male
  Weight: 98.9 kg

DRUGS (1)
  1. PEGYLATED INTERFERON NOS [Suspect]
     Indication: HEPATITIS C POSITIVE
     Route: 058
     Dates: start: 20070919, end: 20080121

REACTIONS (4)
  - EYE PAIN [None]
  - HEADACHE [None]
  - PLATELET COUNT DECREASED [None]
  - VISION BLURRED [None]
